FAERS Safety Report 4617021-6 (Version None)
Quarter: 2005Q1

REPORT INFORMATION
  Report Type: 
  Country: None (occurrence: None)
  Receive Date: 20050318
  Receipt Date: 20050304
  Transmission Date: 20050727
  Serious: Yes (Other)
  Sender: FDA-Public Use
  Company Number: 6013439

PATIENT
  Age: 64 Year
  Sex: Male

DRUGS (5)
  1. CONCOR 10 (TABLET) (BISOPROLOL FUMARATE) [Suspect]
     Indication: ESSENTIAL HYPERTENSION
     Dosage: 10 MG (1 IN, ORAL
     Route: 048
  2. SORTIS  (FILM-COATED )                          (ATORVASTATIN CALCIUM [Suspect]
     Indication: HYPERCHOLESTEROLAEMIA
     Dosage: 10 MG (1 IN ORAL
     Route: 048
     Dates: start: 20040101
  3. NEXIUM [Concomitant]
  4. INSULATARD HM (INSULIN HUMAN INJECTION, ISOPHANE) [Concomitant]
  5. DIOVAN HCT [Concomitant]

REACTIONS (9)
  - ASTHENIA [None]
  - DIZZINESS [None]
  - DIZZINESS POSTURAL [None]
  - FALL [None]
  - FRACTURED SACRUM [None]
  - INJURY [None]
  - MUSCULAR WEAKNESS [None]
  - MYOPATHY [None]
  - SPINAL FRACTURE [None]
